FAERS Safety Report 8240740-X (Version None)
Quarter: 2012Q1

REPORT INFORMATION
  Report Type: 
  Country: None (occurrence: None)
  Receive Date: 20120328
  Receipt Date: 20120314
  Transmission Date: 20120608
  Serious: Yes (Other)
  Sender: FDA-Public Use
  Company Number: US-CELGENEUS-163-21660-12031708

PATIENT
  Sex: Female
  Weight: 58.566 kg

DRUGS (10)
  1. DEXAMETHASONE [Concomitant]
     Dosage: 10 MILLIGRAM
     Route: 041
     Dates: start: 20120117
  2. MUCINEX D [Concomitant]
     Indication: COUGH
     Route: 065
  3. LORAZEPAM [Concomitant]
     Indication: NAUSEA
     Dosage: 1 MILLIGRAM
     Route: 065
  4. ABRAXANE [Suspect]
     Dosage: 400 MILLIGRAM
     Route: 041
     Dates: start: 20120107
  5. XGEVA [Concomitant]
     Dosage: 120 MILLIGRAM
     Route: 058
     Dates: start: 20120109
  6. FULVESTRANT [Concomitant]
     Dosage: 500 MILLIGRAM
     Dates: start: 20120109
  7. PEGFILGRASTIM [Concomitant]
     Dosage: 6 MILLIGRAM
     Route: 058
     Dates: start: 20120118
  8. PROCHLORPERAZINE [Concomitant]
     Indication: NAUSEA
     Dosage: 10 MILLIGRAM
     Route: 065
  9. METHYLPREDNISOLONE [Concomitant]
     Dosage: 125 MILLIGRAM
     Route: 041
     Dates: start: 20120201
  10. HEPARIN [Concomitant]
     Route: 065

REACTIONS (5)
  - COUGH [None]
  - LARYNGITIS [None]
  - FLUSHING [None]
  - THROAT TIGHTNESS [None]
  - BONE PAIN [None]
